FAERS Safety Report 10200347 (Version 2)
Quarter: 2014Q2

REPORT INFORMATION
  Report Type: Spontaneous
  Country: CA (occurrence: CA)
  Receive Date: 20140527
  Receipt Date: 20140530
  Transmission Date: 20141212
  Serious: Yes (Disabling, Other)
  Sender: FDA-Public Use
  Company Number: CA-JNJFOC-20140513616

PATIENT
  Age: 46 Year
  Sex: Female
  Weight: 48.99 kg

DRUGS (1)
  1. NICODERM STEP 1 CLEAR [Suspect]
     Indication: SMOKING CESSATION THERAPY
     Route: 061

REACTIONS (6)
  - Hemiplegia [Unknown]
  - Disability [Unknown]
  - Thermal burn [Not Recovered/Not Resolved]
  - Malaise [Unknown]
  - Vomiting [Unknown]
  - Application site pruritus [Not Recovered/Not Resolved]
